FAERS Safety Report 9012686 (Version 1)
Quarter: 2013Q1

REPORT INFORMATION
  Report Type: Spontaneous
  Country: US (occurrence: US)
  Receive Date: 20130114
  Receipt Date: 20130114
  Transmission Date: 20140127
  Serious: Yes (Other)
  Sender: FDA-Public Use
  Company Number: US-009507513-1301USA003236

PATIENT
  Age: 48 Year
  Sex: Female

DRUGS (2)
  1. SINGULAIR [Suspect]
     Indication: ASTHMA
     Dosage: 10 MG, QD
     Route: 048
  2. SINGULAIR [Suspect]
     Indication: HYPERSENSITIVITY

REACTIONS (11)
  - Tremor [Unknown]
  - Paraesthesia [Unknown]
  - Pain in jaw [Unknown]
  - Pain in extremity [Unknown]
  - Nerve injury [Unknown]
  - Neck pain [Unknown]
  - Myalgia [Unknown]
  - Muscle spasms [Unknown]
  - Insomnia [Unknown]
  - Feeling abnormal [Unknown]
  - Anxiety [Unknown]
